FAERS Safety Report 5150015-3 (Version None)
Quarter: 2006Q4

REPORT INFORMATION
  Report Type: 
  Country: None (occurrence: None)
  Receive Date: 20060918
  Receipt Date: 20060517
  Transmission Date: 20070319
  Serious: Yes (Other)
  Sender: FDA-Public Use
  Company Number: US-JNJFOC-20060504377

PATIENT
  Age: 40 Year
  Sex: Female
  Weight: 68.0396 kg

DRUGS (2)
  1. TOPAMAX [Suspect]
     Indication: DRUG USE FOR UNKNOWN INDICATION
     Dosage: 100 MG , 2 IN 1 DAY, ORAL
     Route: 048
     Dates: start: 20050101
  2. EFFEXOR (TABLET) VENLAFAZINE HYDROCHLORIDE [Concomitant]

REACTIONS (3)
  - OPEN WOUND [None]
  - RASH [None]
  - WEIGHT DECREASED [None]
